FAERS Safety Report 11114697 (Version 2)
Quarter: 2015Q2

REPORT INFORMATION
  Report Type: Spontaneous
  Country: AU (occurrence: None)
  Receive Date: 20150512
  Receipt Date: 20150527
  Transmission Date: 20150821
  Serious: Yes (Hospitalization)
  Sender: FDA-Public Use
  Company Number: UCM201504-000263

PATIENT
  Age: 53 Year
  Sex: Female

DRUGS (5)
  1. MAGNESIUM [Concomitant]
     Active Substance: MAGNESIUM
  2. ACETYLSALICYLIC ACID [Concomitant]
     Active Substance: ASPIRIN
  3. BISOPROLOL FUMARATE (BISOPROLOL FUMARATE) [Suspect]
     Active Substance: BISOPROLOL FUMARATE
     Indication: HYPERTENSION
  4. TIZANIDINE (TIZANIDINE) (TIZANIDINE) [Suspect]
     Active Substance: TIZANIDINE
     Indication: SPINAL PAIN
  5. PANTOPRAZOLE [Concomitant]
     Active Substance: PANTOPRAZOLE SODIUM

REACTIONS (14)
  - Tachycardia [None]
  - Tremor [None]
  - Mental disorder [None]
  - Vomiting [None]
  - Hypotension [None]
  - Delirium [None]
  - Bradycardia [None]
  - Drug withdrawal syndrome [None]
  - Nausea [None]
  - Overdose [None]
  - Cold sweat [None]
  - Depression [None]
  - Hypertension [None]
  - Psychomotor hyperactivity [None]
